FAERS Safety Report 23602136 (Version 1)
Quarter: 2024Q1

REPORT INFORMATION
  Report Type: Spontaneous
  Country: US (occurrence: US)
  Receive Date: 20240306
  Receipt Date: 20240306
  Transmission Date: 20240410
  Serious: No
  Sender: FDA-Public Use
  Company Number: US-SA-SAC20240228001279

PATIENT
  Sex: Female
  Weight: 61.5 kg

DRUGS (2)
  1. DUPIXENT [Suspect]
     Active Substance: DUPILUMAB
     Indication: Dermatitis atopic
     Dosage: 300 MG, QOW
     Route: 058
     Dates: start: 20230313
  2. LORATADINE [Concomitant]
     Active Substance: LORATADINE

REACTIONS (1)
  - Hypersensitivity [Unknown]
